FAERS Safety Report 9234207 (Version 2)
Quarter: 2013Q2

REPORT INFORMATION
  Report Type: Report from Study
  Country: BR (occurrence: BR)
  Receive Date: 20130416
  Receipt Date: 20130515
  Transmission Date: 20140414
  Serious: Yes (Hospitalization, Other)
  Sender: FDA-Public Use
  Company Number: PHHY2013BR036759

PATIENT
  Sex: Female
  Weight: 70 kg

DRUGS (3)
  1. DIOVAN HCT [Suspect]
     Indication: HYPERTENSION
     Dosage: 1 DF (80 MG VALS/ 12,5 MG HYDRO), QD
     Dates: start: 201106
  2. SIMVASTATIN [Concomitant]
     Indication: HYPERCHOLESTEROLAEMIA
     Dosage: 1 DF, (5 MG) DAILY
     Route: 048
  3. SUSTRATE [Concomitant]
     Indication: ARRHYTHMIA
     Dosage: 2 DF, (20 MG) DAILY
     Route: 048

REACTIONS (1)
  - Dengue fever [Recovered/Resolved]
